FAERS Safety Report 6896998-2 (Version None)
Quarter: 2010Q3

REPORT INFORMATION
  Report Type: 
  Country: None (occurrence: None)
  Receive Date: 20100729
  Receipt Date: 20100714
  Transmission Date: 20110219
  Serious: Yes (Other)
  Sender: FDA-Public Use
  Company Number: THQ2010A01904

PATIENT
  Sex: Male

DRUGS (1)
  1. LANSOPRAZOLE [Suspect]
     Indication: DYSPEPSIA
     Dosage: 60 MG (60 MG,1 IN 1 D) PER ORAL; STARTED AROUN 11 YEARS AGO
     Route: 048
     Dates: end: 20090101

REACTIONS (1)
  - CHRONIC MYELOID LEUKAEMIA [None]
